FAERS Safety Report 9792983 (Version 3)
Quarter: 2014Q3

REPORT INFORMATION
  Report Type: Spontaneous
  Country: FR (occurrence: FR)
  Receive Date: 20140102
  Receipt Date: 20140806
  Transmission Date: 20150326
  Serious: Yes (Death, Other)
  Sender: FDA-Public Use
  Company Number: FR-009507513-1401FRA000203

PATIENT
  Age: 0 Day
  Sex: Male
  Weight: .94 kg

DRUGS (6)
  1. FOLLITROPIN BETA [Suspect]
     Active Substance: FOLLITROPIN
     Indication: INFERTILITY
     Dosage: 75 IU, UNK
     Route: 064
     Dates: end: 201203
  2. OVITRELLE [Concomitant]
     Active Substance: CHORIOGONADOTROPIN ALFA
     Route: 064
  3. SPASFON [Concomitant]
     Active Substance: PHLOROGLUCINOL
     Indication: PAIN
     Dosage: UNK
     Route: 064
     Dates: start: 20121017, end: 20121120
  4. GONAL-F [Suspect]
     Active Substance: FOLLITROPIN
     Indication: INFERTILITY
     Route: 064
  5. MOPRAL (OMEPRAZOLE) [Concomitant]
     Active Substance: OMEPRAZOLE SODIUM
     Indication: NAUSEA
     Dosage: 1 DF, QD
     Route: 064
     Dates: start: 20121017, end: 20121120
  6. CHOLECALCIFEROL [Concomitant]
     Active Substance: CHOLECALCIFEROL
     Route: 064

REACTIONS (2)
  - Placental insufficiency [Fatal]
  - Stillbirth [Not Recovered/Not Resolved]

NARRATIVE: CASE EVENT DATE: 20121122
